FAERS Safety Report 11463194 (Version 3)
Quarter: 2016Q4

REPORT INFORMATION
  Report Type: Report from Study
  Country: US (occurrence: US)
  Receive Date: 20150905
  Receipt Date: 20161108
  Transmission Date: 20170206
  Serious: No
  Sender: FDA-Public Use
  Company Number: PHEH2015US017298

PATIENT
  Age: 51 Year
  Sex: Female

DRUGS (1)
  1. GILENYA [Suspect]
     Active Substance: FINGOLIMOD HYDROCHLORIDE
     Indication: MULTIPLE SCLEROSIS
     Dosage: 0.5 MG, QD
     Route: 048
     Dates: start: 20150825

REACTIONS (5)
  - Heart rate decreased [Unknown]
  - Emotional disorder [Unknown]
  - Fall [Unknown]
  - Wrist fracture [Unknown]
  - Crying [Unknown]

NARRATIVE: CASE EVENT DATE: 20150825
